FAERS Safety Report 8651843 (Version 3)
Quarter: 2012Q4

REPORT INFORMATION
  Report Type: 
  Country: JP (occurrence: JP)
  Receive Date: 20120706
  Receipt Date: 20121101
  Transmission Date: 20130627
  Serious: Yes (Other)
  Sender: FDA-Public Use
  Company Number: JP-PFIZER INC-2012156304

PATIENT
  Age: 67 Year
  Sex: Male
  Weight: 60 kg

DRUGS (3)
  1. VFEND [Suspect]
     Indication: PULMONARY ASPERGILLOSIS
     Dosage: 400 mg, 2x/day
     Route: 048
     Dates: start: 201205, end: 201205
  2. VFEND [Suspect]
     Dosage: 200 mg, 2x/day
     Route: 048
     Dates: start: 201205, end: 201205
  3. ZANTAC [Concomitant]
     Route: 048

REACTIONS (6)
  - Exophthalmos [Recovered/Resolved]
  - Photophobia [Recovered/Resolved]
  - Headache [Recovered/Resolved]
  - Decreased appetite [Recovered/Resolved]
  - Malaise [Recovered/Resolved]
  - Abdominal pain upper [Unknown]
